FAERS Safety Report 4822741-4 (Version None)
Quarter: 2005Q4

REPORT INFORMATION
  Report Type: 
  Country: None (occurrence: None)
  Receive Date: 20051107
  Receipt Date: 20051107
  Transmission Date: 20060501
  Serious: Yes (Hospitalization)
  Sender: FDA-Public Use
  Company Number: None

PATIENT
  Age: 58 Year
  Sex: Male
  Weight: 88.4514 kg

DRUGS (1)
  1. ALKA-SELTZER PLUS [Suspect]
     Indication: NASOPHARYNGITIS
     Dosage: 2 TABLETS ONCE
     Dates: start: 20040131, end: 20040131

REACTIONS (4)
  - CEREBROVASCULAR ACCIDENT [None]
  - FATIGUE [None]
  - LOSS OF CONSCIOUSNESS [None]
  - MALAISE [None]
